FAERS Safety Report 17238707 (Version 9)
Quarter: 2020Q4

REPORT INFORMATION
  Report Type: Report from Study
  Country: None (occurrence: DK)
  Receive Date: 20200106
  Receipt Date: 20201217
  Transmission Date: 20210113
  Serious: Yes (Hospitalization)
  Sender: FDA-Public Use
  Company Number: DK-ABBVIE-19P-044-3215225-00

PATIENT
  Age: 84 Year
  Sex: Male

DRUGS (24)
  1. VENETOCLAX. [Suspect]
     Active Substance: VENETOCLAX
     Route: 048
     Dates: start: 20190710, end: 20190717
  2. RITUXIMAB. [Suspect]
     Active Substance: RITUXIMAB
     Dosage: DAY 1 OF EACH 28-DAY CYCLE
     Route: 042
     Dates: start: 20190905, end: 20191128
  3. MAGNESIA [Concomitant]
     Active Substance: MAGNESIUM HYDROXIDE
     Indication: CONSTIPATION
     Dates: start: 20150916
  4. VENETOCLAX. [Suspect]
     Active Substance: VENETOCLAX
     Route: 048
     Dates: start: 20190718, end: 20190724
  5. VENETOCLAX. [Suspect]
     Active Substance: VENETOCLAX
     Route: 048
     Dates: end: 20191227
  6. VENETOCLAX. [Suspect]
     Active Substance: VENETOCLAX
     Route: 048
     Dates: start: 20200107
  7. RITUXIMAB. [Suspect]
     Active Substance: RITUXIMAB
     Dosage: DAY 1 OF EACH 28 DAY-CYCLE
     Route: 042
     Dates: start: 20200107
  8. TICAGRELOR. [Concomitant]
     Active Substance: TICAGRELOR
     Indication: THROMBOSIS PROPHYLAXIS
     Dates: start: 20161230
  9. GLYCERYLNITRAT [Concomitant]
     Indication: AORTIC ARTERIOSCLEROSIS
     Dates: start: 20141104
  10. VENETOCLAX. [Suspect]
     Active Substance: VENETOCLAX
     Route: 048
     Dates: start: 20190801, end: 20191127
  11. BENDAMUSTINE [Suspect]
     Active Substance: BENDAMUSTINE
     Indication: CHRONIC LYMPHOCYTIC LEUKAEMIA
     Dosage: DAYS 1 AND 2 OF 28-DAY CYCLE
     Route: 042
     Dates: start: 20150713, end: 20151201
  12. TOILAX [Concomitant]
     Active Substance: BISACODYL
     Indication: CONSTIPATION
     Dates: start: 20191031
  13. FINASTERID [Concomitant]
     Active Substance: FINASTERIDE
     Indication: BENIGN PROSTATIC HYPERPLASIA
     Dates: start: 20111221
  14. VENETOCLAX. [Suspect]
     Active Substance: VENETOCLAX
     Indication: CHRONIC LYMPHOCYTIC LEUKAEMIA
     Route: 048
     Dates: start: 20190703, end: 20190709
  15. ACETYLSALICYLIC ACID [Concomitant]
     Active Substance: ASPIRIN
     Indication: THROMBOSIS PROPHYLAXIS
     Dates: start: 20111221
  16. NEPAFENAC [Concomitant]
     Active Substance: NEPAFENAC
     Indication: OTOSCLEROSIS
     Dates: start: 20161208
  17. VENETOCLAX. [Suspect]
     Active Substance: VENETOCLAX
     Route: 048
     Dates: start: 20190725, end: 20190731
  18. RITUXIMAB. [Suspect]
     Active Substance: RITUXIMAB
     Route: 042
     Dates: start: 20190808, end: 20190808
  19. SIMVASTATIN. [Concomitant]
     Active Substance: SIMVASTATIN
     Indication: HYPERCHOLESTEROLAEMIA
     Dates: start: 20111221
  20. ALLOPURINOL. [Concomitant]
     Active Substance: ALLOPURINOL
     Indication: GOUT
     Dates: start: 20150511, end: 20150909
  21. RITUXIMAB. [Suspect]
     Active Substance: RITUXIMAB
     Indication: CHRONIC LYMPHOCYTIC LEUKAEMIA
     Route: 042
     Dates: start: 20150713, end: 20150713
  22. RITUXIMAB. [Suspect]
     Active Substance: RITUXIMAB
     Dosage: DAY 1 OF EACH 28-DAY CYCLE
     Route: 042
     Dates: start: 20150810, end: 20151130
  23. DEXAMETHASON AND TOBRAMYCIN [Concomitant]
     Indication: OTOSCLEROSIS
     Dates: start: 20161208
  24. ALLOPURINOL. [Concomitant]
     Active Substance: ALLOPURINOL
     Indication: PROPHYLAXIS
     Dates: start: 20190702, end: 20190711

REACTIONS (2)
  - Electrocardiogram QT prolonged [Recovered/Resolved]
  - Pneumonia [Recovered/Resolved]

NARRATIVE: CASE EVENT DATE: 20191128
